FAERS Safety Report 16456901 (Version 2)
Quarter: 2022Q2

REPORT INFORMATION
  Report Type: Report from Study
  Country: MX (occurrence: MX)
  Receive Date: 20190620
  Receipt Date: 20220512
  Transmission Date: 20220721
  Serious: Yes (Other)
  Sender: FDA-Public Use
  Company Number: PHHY2019MX142065

PATIENT
  Sex: Male
  Weight: 90 kg

DRUGS (2)
  1. ENTRESTO [Suspect]
     Active Substance: SACUBITRIL\VALSARTAN
     Indication: Blood cholesterol abnormal
     Dosage: 100 MG, UNK
     Route: 048
     Dates: start: 201709
  2. ENTRESTO [Suspect]
     Active Substance: SACUBITRIL\VALSARTAN
     Indication: Cardiac disorder
     Dosage: 1 DOSAGE FORM (10MG)
     Route: 065
     Dates: start: 202003

REACTIONS (12)
  - Myocardial infarction [Unknown]
  - Blindness [Not Recovered/Not Resolved]
  - Movement disorder [Unknown]
  - Oxygen consumption decreased [Unknown]
  - Eye disorder [Unknown]
  - Dyspnoea [Not Recovered/Not Resolved]
  - Throat tightness [Not Recovered/Not Resolved]
  - Eye colour change [Unknown]
  - Malaise [Not Recovered/Not Resolved]
  - Respiration abnormal [Unknown]
  - Fatigue [Unknown]
  - Product use in unapproved indication [Unknown]

NARRATIVE: CASE EVENT DATE: 20170101
